FAERS Safety Report 4667668-6 (Version None)
Quarter: 2005Q2

REPORT INFORMATION
  Report Type: 
  Country: None (occurrence: None)
  Receive Date: 20050519
  Receipt Date: 20050519
  Transmission Date: 20051028
  Serious: Yes (Death, Hospitalization)
  Sender: FDA-Public Use
  Company Number: None

PATIENT
  Age: 44 Year
  Sex: Female
  Weight: 55.8 kg

DRUGS (7)
  1. DACARBAZINE [Suspect]
     Indication: MALIGNANT MELANOMA STAGE IV
     Dosage: 250 MG/M2 Q WEEK IV
     Route: 042
     Dates: start: 20050217, end: 20050331
  2. BORTAZOMIB [Suspect]
     Indication: MALIGNANT MELANOMA STAGE IV
     Dosage: 1.0 MG/M2 Q WEEK IV
     Route: 042
     Dates: start: 20050217, end: 20050331
  3. OXYCONTIN [Concomitant]
  4. LORAZEPAM [Concomitant]
  5. PTASSIUM [Concomitant]
  6. K-DUR 10 [Concomitant]
  7. ADVIL ALERGY SINUS [Concomitant]

REACTIONS (2)
  - DISEASE PROGRESSION [None]
  - HYPONATRAEMIA [None]
